FAERS Safety Report 5893314-X (Version None)
Quarter: 2008Q3

REPORT INFORMATION
  Report Type: 
  Country: None (occurrence: None)
  Receive Date: 20080923
  Receipt Date: 20080916
  Transmission Date: 20090109
  Serious: Yes (Disabling)
  Sender: FDA-Public Use
  Company Number: B0537366A

PATIENT
  Age: 68 Year
  Sex: Female

DRUGS (9)
  1. DEROXAT [Suspect]
     Indication: DEPRESSION
     Dosage: 20MG PER DAY
     Route: 048
     Dates: start: 20080101
  2. VASTAREL [Suspect]
     Dosage: 70MG PER DAY
     Route: 048
     Dates: start: 20070101, end: 20080520
  3. ISOPTIN [Concomitant]
     Route: 065
  4. MOTILIUM [Concomitant]
     Route: 065
  5. ELISOR [Concomitant]
     Route: 065
  6. NEXIUM [Concomitant]
     Route: 065
  7. ADANCOR [Concomitant]
     Route: 065
  8. ASPIRIN [Concomitant]
     Route: 065
  9. XANAX [Concomitant]
     Route: 065

REACTIONS (8)
  - DYSGRAPHIA [None]
  - FATIGUE [None]
  - HYPERTONIA [None]
  - HYPOKINESIA [None]
  - PARKINSON'S DISEASE [None]
  - SALIVARY HYPERSECRETION [None]
  - SLUGGISHNESS [None]
  - TREMOR [None]
